FAERS Safety Report 7505537-4 (Version None)
Quarter: 2011Q2

REPORT INFORMATION
  Report Type: 
  Country: None (occurrence: None)
  Receive Date: 20110526
  Receipt Date: 20110518
  Transmission Date: 20111010
  Serious: Yes (Hospitalization, Other)
  Sender: FDA-Public Use
  Company Number: US-ASTELLAS-2011US001043

PATIENT
  Sex: Male
  Weight: 82 kg

DRUGS (13)
  1. ASPIRIN [Concomitant]
     Indication: PRODUCT USED FOR UNKNOWN INDICATION
     Dosage: 81 MG, UID/QD
     Route: 048
  2. CELLCEPT [Concomitant]
     Indication: RENAL TRANSPLANT
     Dosage: 750 MG, BID
     Route: 048
     Dates: start: 20031119
  3. COZAAR [Concomitant]
     Indication: PRODUCT USED FOR UNKNOWN INDICATION
     Dosage: 10 MG, UID/QD
     Route: 048
  4. PREDNISONE [Concomitant]
     Indication: RENAL TRANSPLANT
     Dosage: 5 MG, UID/QD
     Route: 048
     Dates: start: 20031119
  5. ZITHROMAX [Concomitant]
     Indication: NASOPHARYNGITIS
     Dosage: UNK
     Route: 065
     Dates: start: 20110201, end: 20110201
  6. TRANDATE [Concomitant]
     Indication: PRODUCT USED FOR UNKNOWN INDICATION
     Dosage: 200 MG, UID/QD
     Route: 048
  7. PROGRAF [Suspect]
     Indication: RENAL TRANSPLANT
     Dosage: 2.5 MG, BID
     Route: 048
     Dates: start: 20031119
  8. PROGRAF [Suspect]
     Dosage: 2 MG, UID/QD
     Route: 048
  9. PEPCID [Concomitant]
     Indication: PRODUCT USED FOR UNKNOWN INDICATION
     Dosage: 20 MG, BID
     Route: 048
  10. CELLCEPT [Concomitant]
     Dosage: 250 MG, UID/QD
     Route: 048
  11. LIPITOR [Concomitant]
     Indication: PRODUCT USED FOR UNKNOWN INDICATION
     Dosage: 40 MG, UID/QD
     Route: 048
  12. LASIX [Concomitant]
     Indication: PRODUCT USED FOR UNKNOWN INDICATION
     Dosage: UNK
     Route: 065
  13. MAGNESIUM SULFATE [Concomitant]
     Indication: PRODUCT USED FOR UNKNOWN INDICATION
     Dosage: 250 MG, UID/QD
     Route: 048

REACTIONS (13)
  - COMPLICATIONS OF TRANSPLANTED KIDNEY [None]
  - POST PROCEDURAL HAEMORRHAGE [None]
  - IGA NEPHROPATHY [None]
  - DEEP VEIN THROMBOSIS [None]
  - DIARRHOEA [None]
  - VIRAL INFECTION [None]
  - THROMBOCYTOPENIA [None]
  - ANAEMIA [None]
  - RENAL FAILURE ACUTE [None]
  - NEPHROPATHY TOXIC [None]
  - DYSURIA [None]
  - GENERALISED OEDEMA [None]
  - LEUKOPENIA [None]
